FAERS Safety Report 8811277 (Version 1)
Quarter: 2012Q4

REPORT INFORMATION
  Report Type: Spontaneous
  Country: US (occurrence: None)
  Receive Date: 20120924
  Receipt Date: 20120924
  Transmission Date: 20130627
  Serious: Yes (Hospitalization)
  Sender: FDA-Public Use
  Company Number: 2012SUN00013

PATIENT
  Age: 52 Year
  Sex: Male

DRUGS (3)
  1. SERTRALINE HCL [Suspect]
     Indication: DEPRESSION
  2. SERTRALINE HCL [Suspect]
     Indication: DEPRESSION
  3. METHYLPREDNISOLONE [Concomitant]

REACTIONS (7)
  - Diffuse alveolar damage [None]
  - Respiratory failure [None]
  - Cyanosis [None]
  - Red blood cell count decreased [None]
  - White blood cell count decreased [None]
  - Neonatal respiratory distress syndrome [None]
  - Pulmonary fibrosis [None]
